FAERS Safety Report 4330078-5 (Version None)
Quarter: 2004Q1

REPORT INFORMATION
  Report Type: 
  Country: None (occurrence: None)
  Receive Date: 20040329
  Receipt Date: 20040316
  Transmission Date: 20041129
  Serious: Yes (Hospitalization, Other)
  Sender: FDA-Public Use
  Company Number: HQWYE909417MAR04

PATIENT
  Age: 88 Year
  Sex: Female

DRUGS (8)
  1. PROPRANOLOL HCL [Suspect]
     Dosage: 20 MG 2X PER 1 DAY; ORAL
     Route: 048
     Dates: start: 20030101, end: 20040105
  2. NEUTROGENA (CASTROL OIL/COCONUT OIL/STEARIC ACID/TROLAMINE LAURYLSULFA [Suspect]
     Dosage: TOPICAL
     Route: 061
     Dates: start: 20040105
  3. NICERGOLINE (NICERGOLINE,) [Suspect]
     Dosage: 3 DOSE 1X PER 1 DAY; ORAL
     Route: 048
     Dates: start: 20030101, end: 20040105
  4. NOCTRAN 10 (ACEPROMAZINE/ACEPROMETAZINE/CLORAZEPATE DIPOTASSIUM,) [Suspect]
     Dosage: 10 MG 1X PER 1 DAY; ORAL
     Route: 048
     Dates: end: 20040105
  5. PRIMPERAN INJ [Suspect]
     Indication: GASTROENTERITIS
     Dosage: 30 MG 1X PER 1 DAY; ORAL
     Route: 048
     Dates: start: 20040103, end: 20040105
  6. SEGLOR (DIHYDROERGOTAMINE MESILATE, ) [Suspect]
     Dosage: 5MG 1X PER 1 DAY; ORAL
     Route: 048
     Dates: start: 20030101, end: 20040105
  7. TIORFAN (ACETORPHAN, ) [Suspect]
     Indication: GASTROENTERITIS
     Dosage: 100 MG 3X PER 1 DAY; ORAL
     Route: 048
     Dates: start: 20040103, end: 20040105
  8. RAMIPRIL [Suspect]
     Dosage: 2.5 MG 1X PER 1 DAY; ORAL
     Route: 048
     Dates: start: 20030101, end: 20040105

REACTIONS (4)
  - ANGIONEUROTIC OEDEMA [None]
  - DYSPHAGIA [None]
  - DYSPNOEA [None]
  - HYPERHIDROSIS [None]
